FAERS Safety Report 15862141 (Version 1)
Quarter: 2019Q1

REPORT INFORMATION
  Report Type: Spontaneous
  Country: MX (occurrence: MX)
  Receive Date: 20190124
  Receipt Date: 20190124
  Transmission Date: 20190417
  Serious: Yes (Disabling)
  Sender: FDA-Public Use
  Company Number: None

PATIENT
  Age: 1 Year
  Sex: Male
  Weight: 11 kg

DRUGS (3)
  1. NISOLVER PREDNISOLONA [Suspect]
     Active Substance: PREDNISOLONE
     Indication: PRODUCTIVE COUGH
     Dosage: ?          QUANTITY:3.5 MILILITROS;?
     Route: 048
  2. AMOXICILLIN. [Concomitant]
     Active Substance: AMOXICILLIN
  3. CHLORPHENAMINE [Concomitant]
     Active Substance: CHLORPHENIRAMINE MALEATE

REACTIONS (2)
  - Crying [None]
  - Facial paralysis [None]

NARRATIVE: CASE EVENT DATE: 20190123
